FAERS Safety Report 10094260 (Version 1)
Quarter: 2014Q2

REPORT INFORMATION
  Report Type: Spontaneous
  Country: BE (occurrence: BE)
  Receive Date: 20140422
  Receipt Date: 20140422
  Transmission Date: 20141212
  Serious: Yes (Hospitalization)
  Sender: FDA-Public Use
  Company Number: BE-BAYER-2014-054560

PATIENT
  Age: 30 Year
  Sex: Female

DRUGS (3)
  1. MIRENA [Suspect]
     Dosage: 20 ?G/D, CONT
     Route: 015
  2. YAZ 0,02MG/3MG, FILMOMHULDE TABLETTEN [Suspect]
     Dosage: UNK
     Route: 048
     Dates: start: 2012
  3. CIPROXINE [Concomitant]
     Dosage: 500 MG, BID

REACTIONS (9)
  - Weight increased [None]
  - Pulmonary embolism [None]
  - Malaise [None]
  - Dizziness postural [None]
  - Chest discomfort [None]
  - Chest pain [None]
  - Nausea [None]
  - Dyspnoea at rest [None]
  - Palpitations [None]
